FAERS Safety Report 5718213-5 (Version None)
Quarter: 2008Q2

REPORT INFORMATION
  Report Type: 
  Country: None (occurrence: None)
  Receive Date: 20080425
  Receipt Date: 20080414
  Transmission Date: 20081010
  Serious: Yes (Other)
  Sender: FDA-Public Use
  Company Number: KR-ROCHE-559154

PATIENT
  Age: 38 Year
  Sex: Male

DRUGS (2)
  1. CAPECITABINE [Suspect]
     Indication: GASTRIC CANCER
     Dosage: RECEIVED DAYS 1-14 PER 3 WK CYCLE
     Route: 048
  2. CISPLATIN [Suspect]
     Indication: GASTRIC CANCER
     Route: 042

REACTIONS (1)
  - TUMOUR LYSIS SYNDROME [None]
